FAERS Safety Report 15319108 (Version 5)
Quarter: 2019Q2

REPORT INFORMATION
  Report Type: Report from Study
  Country: US (occurrence: US)
  Receive Date: 20180826
  Receipt Date: 20190508
  Transmission Date: 20190711
  Serious: Yes (Hospitalization, Other)
  Sender: FDA-Public Use
  Company Number: US-ACTELION-A-NJ2018-177732

PATIENT
  Age: 67 Year
  Sex: Female
  Weight: 92.97 kg

DRUGS (8)
  1. DILTIAZEM. [Concomitant]
     Active Substance: DILTIAZEM
     Dosage: UNK
     Dates: start: 2013
  2. UPTRAVI [Suspect]
     Active Substance: SELEXIPAG
     Indication: PULMONARY ARTERIAL HYPERTENSION
     Dosage: 800 MCG, BID
     Route: 048
     Dates: start: 20160504
  3. ALDACTONE [Concomitant]
     Active Substance: SPIRONOLACTONE
     Dosage: UNK
     Dates: start: 2013
  4. UPTRAVI [Suspect]
     Active Substance: SELEXIPAG
     Dosage: UNK
     Route: 048
     Dates: start: 20160404
  5. SILDENAFIL CITRATE. [Concomitant]
     Active Substance: SILDENAFIL CITRATE
     Dosage: UNK
     Dates: start: 2013
  6. ELIQUIS [Concomitant]
     Active Substance: APIXABAN
  7. METFORMIN [Concomitant]
     Active Substance: METFORMIN HYDROCHLORIDE
     Dosage: UNK
     Dates: start: 2013
  8. LASIX [Concomitant]
     Active Substance: FUROSEMIDE
     Dosage: UNK
     Dates: start: 2013

REACTIONS (11)
  - Cellulitis [Unknown]
  - Musculoskeletal pain [Unknown]
  - Neck pain [Unknown]
  - Urinary tract infection [Unknown]
  - Rash [Unknown]
  - Fatigue [Unknown]
  - Spinal operation [Unknown]
  - Staphylococcal bacteraemia [Recovered/Resolved]
  - Chest pain [Unknown]
  - Pyrexia [Unknown]
  - Mental status changes [Unknown]

NARRATIVE: CASE EVENT DATE: 201808
